FAERS Safety Report 8424385-4 (Version None)
Quarter: 2012Q2

REPORT INFORMATION
  Report Type: 
  Country: None (occurrence: None)
  Receive Date: 20120608
  Receipt Date: 20110824
  Transmission Date: 20120825
  Serious: No
  Sender: FDA-Public Use
  Company Number: US-ASTRAZENECA-2011SE50768

PATIENT
  Age: 72 Year
  Sex: Male
  Weight: 86.2 kg

DRUGS (6)
  1. PREDNISONE [Concomitant]
  2. FUROSEMIDE [Concomitant]
  3. PLAVIX [Concomitant]
  4. PULMICORT FLEXHALER [Suspect]
     Indication: EMPHYSEMA
     Dosage: ONE PUFF TWICE, TOTAL DAILY DOSE TWO PUFFS
     Route: 055
  5. POTASSIUM [Concomitant]
  6. AMLODIPINE [Concomitant]

REACTIONS (5)
  - HAEMORRHAGIC DIATHESIS [None]
  - RASH [None]
  - IMPAIRED HEALING [None]
  - INAPPROPRIATE SCHEDULE OF DRUG ADMINISTRATION [None]
  - OFF LABEL USE [None]
